FAERS Safety Report 6013197-7 (Version None)
Quarter: 2008Q4

REPORT INFORMATION
  Report Type: 
  Country: None (occurrence: None)
  Receive Date: 20081219
  Receipt Date: 20081215
  Transmission Date: 20090506
  Serious: Yes (Death, Hospitalization, Other)
  Sender: FDA-Public Use
  Company Number: GB-ELI_LILLY_AND_COMPANY-GB200812003590

PATIENT
  Age: 75 Year
  Sex: Male
  Weight: 96.5 kg

DRUGS (11)
  1. BYETTA [Suspect]
     Dosage: 10 MG, 2/D
     Route: 058
     Dates: start: 20071203, end: 20081028
  2. AMITRIPTYLINE HCL [Concomitant]
  3. ASPIRIN [Concomitant]
  4. CITALOPRAM [Concomitant]
  5. DICYCLOMINE HYDROCHLORIDE [Concomitant]
  6. GLICLAZIDE [Concomitant]
  7. METFORMIN HCL [Concomitant]
  8. RAMIPRIL [Concomitant]
  9. SIMVASTATIN [Concomitant]
  10. LEVOTHYROXINE SODIUM [Concomitant]
  11. TIOTROPIUM BROMIDE [Concomitant]

REACTIONS (3)
  - MYOCARDIAL INFARCTION [None]
  - MYOCARDIAL ISCHAEMIA [None]
  - PANCREATITIS ACUTE [None]
